FAERS Safety Report 8489854-X (Version None)
Quarter: 2012Q3

REPORT INFORMATION
  Report Type: 
  Country: None (occurrence: None)
  Receive Date: 20120705
  Receipt Date: 20120627
  Transmission Date: 20120928
  Serious: Yes (Hospitalization)
  Sender: FDA-Public Use
  Company Number: PHHY2012IT055133

PATIENT
  Sex: Female

DRUGS (1)
  1. CEFTRIAXONE [Suspect]
     Indication: TOOTHACHE
     Dosage: 1 DF(POSOLOGIC UNIT)
     Dates: start: 20120425

REACTIONS (3)
  - DIARRHOEA [None]
  - ENTERITIS [None]
  - ABDOMINAL PAIN [None]
